FAERS Safety Report 23081826 (Version 1)
Quarter: 2023Q4

REPORT INFORMATION
  Report Type: Spontaneous
  Country: US (occurrence: US)
  Receive Date: 20231019
  Receipt Date: 20231019
  Transmission Date: 20240110
  Serious: Yes (Death, Hospitalization, Other)
  Sender: FDA-Public Use
  Company Number: US-ALEMBIC PHARMACUETICALS LIMITED-2023SCAL000893

PATIENT

DRUGS (2)
  1. QUETIAPINE FUMARATE [Interacting]
     Active Substance: QUETIAPINE FUMARATE
     Indication: Bipolar disorder
     Dosage: UNK
     Route: 065
  2. HALOPERIDOL [Interacting]
     Active Substance: HALOPERIDOL
     Indication: Bipolar disorder
     Dosage: UNK
     Route: 065

REACTIONS (21)
  - Multiple organ dysfunction syndrome [Fatal]
  - Neuroleptic malignant syndrome [Fatal]
  - Unresponsive to stimuli [Fatal]
  - Pyrexia [Fatal]
  - Shock [Fatal]
  - Depressed level of consciousness [Fatal]
  - Miosis [Fatal]
  - Muscle rigidity [Fatal]
  - Azotaemia [Fatal]
  - Hepatic enzyme increased [Fatal]
  - Prothrombin time prolonged [Fatal]
  - Activated partial thromboplastin time prolonged [Fatal]
  - Blood creatine phosphokinase increased [Fatal]
  - Blood lactate dehydrogenase increased [Fatal]
  - Haemophagocytic lymphohistiocytosis [Fatal]
  - Hepatosplenomegaly [Fatal]
  - Hyperferritinaemia [Fatal]
  - Hypertriglyceridaemia [Fatal]
  - Blood fibrinogen decreased [Fatal]
  - Toxicity to various agents [Fatal]
  - Drug interaction [Unknown]
